FAERS Safety Report 13237684 (Version 2)
Quarter: 2017Q1

REPORT INFORMATION
  Report Type: Spontaneous
  Country: AU (occurrence: AU)
  Receive Date: 20170215
  Receipt Date: 20170320
  Transmission Date: 20170428
  Serious: Yes (Hospitalization, Other)
  Sender: FDA-Public Use
  Company Number: AU-AMGEN-AUSSP2016173522

PATIENT
  Age: 75 Year
  Sex: Female

DRUGS (2)
  1. DOCETAXEL. [Suspect]
     Active Substance: DOCETAXEL
     Indication: BREAST CANCER METASTATIC
     Dosage: 100 MG/M2, UNK (DAY 1)
     Route: 042
  2. PEGFILGRASTIM [Suspect]
     Active Substance: PEGFILGRASTIM
     Indication: HAEMATOPOIETIC STEM CELL MOBILISATION
     Dosage: 6 MG, UNK (DAY 2)
     Route: 058

REACTIONS (8)
  - Atelectasis [Unknown]
  - Dyspnoea [Unknown]
  - Pleural effusion [Unknown]
  - Off label use [Unknown]
  - Lethargy [Unknown]
  - Performance status decreased [Unknown]
  - Arthralgia [Unknown]
  - Malignant neoplasm progression [Unknown]
